FAERS Safety Report 4790447-6 (Version None)
Quarter: 2005Q4

REPORT INFORMATION
  Report Type: 
  Country: None (occurrence: None)
  Receive Date: 20051005
  Receipt Date: 20050921
  Transmission Date: 20060501
  Serious: Yes (Hospitalization, Other)
  Sender: FDA-Public Use
  Company Number: USA-2004-0016322

PATIENT
  Age: 21 Year
  Sex: Female
  Weight: 49.4 kg

DRUGS (4)
  1. OXYCONTIN [Suspect]
     Indication: PELVIC PAIN
     Dosage: 10 MG, ORAL; 20 MG, ORAL
     Route: 048
  2. LUPRON [Concomitant]
  3. BEXTRA [Concomitant]
  4. EFFEXOR [Concomitant]

REACTIONS (34)
  - AFFECTIVE DISORDER [None]
  - AGITATION [None]
  - ALCOHOLISM [None]
  - ANXIETY [None]
  - BACK PAIN [None]
  - CHILLS [None]
  - CONDITION AGGRAVATED [None]
  - CYSTITIS INTERSTITIAL [None]
  - DECREASED APPETITE [None]
  - DEHYDRATION [None]
  - DELUSIONAL DISORDER, UNSPECIFIED TYPE [None]
  - DEPRESSION [None]
  - DISTURBANCE IN ATTENTION [None]
  - DOCUMENTED HYPERSENSITIVITY TO ADMINISTERED DRUG [None]
  - DRUG DEPENDENCE [None]
  - DRUG TOLERANCE [None]
  - DRUG WITHDRAWAL SYNDROME [None]
  - DYSFUNCTIONAL UTERINE BLEEDING [None]
  - DYSPAREUNIA [None]
  - DYSPEPSIA [None]
  - FATIGUE [None]
  - HOT FLUSH [None]
  - HYPERHIDROSIS [None]
  - LOSS OF CONSCIOUSNESS [None]
  - NAUSEA [None]
  - OBSESSIVE-COMPULSIVE DISORDER [None]
  - PAIN [None]
  - PARANOIA [None]
  - PELVIC PAIN [None]
  - POLYSUBSTANCE ABUSE [None]
  - SYNCOPE [None]
  - VAGINAL HAEMORRHAGE [None]
  - VOMITING [None]
  - WEIGHT DECREASED [None]
